FAERS Safety Report 24297444 (Version 1)
Quarter: 2024Q3

REPORT INFORMATION
  Report Type: Spontaneous
  Country: US (occurrence: US)
  Receive Date: 20240909
  Receipt Date: 20240909
  Transmission Date: 20241017
  Serious: No
  Sender: AMNEAL
  Company Number: US-AMNEAL PHARMACEUTICALS-2024-AMRX-02409

PATIENT
  Sex: Male

DRUGS (2)
  1. GABAPENTIN [Suspect]
     Active Substance: GABAPENTIN
     Indication: Product used for unknown indication
     Dosage: UNK
     Route: 065
  2. LENVIMA [Suspect]
     Active Substance: LENVATINIB
     Indication: Pulmonary pain
     Dosage: 20 MILLIGRAM
     Route: 065

REACTIONS (4)
  - Hypertension [Recovering/Resolving]
  - Skin exfoliation [Unknown]
  - Stomatitis [Unknown]
  - Fatigue [Unknown]
